FAERS Safety Report 5732436-0 (Version None)
Quarter: 2008Q2

REPORT INFORMATION
  Report Type: 
  Country: None (occurrence: None)
  Receive Date: 20080507
  Receipt Date: 20080417
  Transmission Date: 20081010
  Serious: Yes (Hospitalization)
  Sender: FDA-Public Use
  Company Number: ENTC2008-0067

PATIENT
  Age: 80 Year
  Sex: Female

DRUGS (9)
  1. STALEVO 100 [Suspect]
     Dosage: 150/37.5/200 MG  7 QD, ORAL
     Route: 048
     Dates: start: 20080101
  2. MODOPAR LP [Concomitant]
  3. SINEMET [Concomitant]
  4. FUMAFER [Concomitant]
  5. EXELON [Concomitant]
  6. CLOZAPINE [Concomitant]
  7. PLAVIX [Concomitant]
  8. DEROXAT [Concomitant]
  9. INIPOP [Concomitant]

REACTIONS (2)
  - NAUSEA [None]
  - OESOPHAGEAL PAIN [None]
